FAERS Safety Report 8293127-8 (Version None)
Quarter: 2012Q2

REPORT INFORMATION
  Report Type: 
  Country: None (occurrence: None)
  Receive Date: 20120417
  Receipt Date: 20120221
  Transmission Date: 20120825
  Serious: No
  Sender: FDA-Public Use
  Company Number: US-ASTRAZENECA-2012SE12126

PATIENT
  Age: 81 Year
  Sex: Male
  Weight: 72.6 kg

DRUGS (11)
  1. METOPROLOL SUCCINATE [Suspect]
     Route: 048
     Dates: start: 20120210
  2. CRESTOR [Suspect]
     Route: 048
     Dates: start: 20080101
  3. ZETIA [Suspect]
     Route: 065
     Dates: start: 20080101
  4. METOPROLOL SUCCINATE [Suspect]
     Route: 048
     Dates: start: 20120210
  5. NEXIUM [Suspect]
     Indication: GASTROOESOPHAGEAL REFLUX DISEASE
     Route: 048
  6. METOPROLOL SUCCINATE [Suspect]
     Indication: HYPERTENSION
     Route: 048
  7. METOPROLOL SUCCINATE [Suspect]
     Indication: ARRHYTHMIA
     Route: 048
  8. LIPITOR [Suspect]
     Route: 065
     Dates: start: 20080101
  9. ASPIRIN [Concomitant]
  10. ZOCOR [Suspect]
     Route: 065
     Dates: start: 20080101
  11. VITAMIN TAB [Concomitant]

REACTIONS (6)
  - BLOOD PRESSURE INCREASED [None]
  - PAIN IN EXTREMITY [None]
  - HEART RATE INCREASED [None]
  - HERNIA [None]
  - MUSCULAR WEAKNESS [None]
  - DRUG INEFFECTIVE [None]
